FAERS Safety Report 25247442 (Version 3)
Quarter: 2025Q3

REPORT INFORMATION
  Report Type: Report from Study
  Country: EU (occurrence: EU)
  Receive Date: 20250428
  Receipt Date: 20250910
  Transmission Date: 20251021
  Serious: Yes (Hospitalization)
  Sender: VERTEX
  Company Number: EU-VERTEX PHARMACEUTICALS-2024-006027

PATIENT
  Sex: Female
  Weight: 130 kg

DRUGS (25)
  1. ELEXACAFTOR\IVACAFTOR\TEZACAFTOR [Suspect]
     Active Substance: ELEXACAFTOR\IVACAFTOR\TEZACAFTOR
     Indication: Cystic fibrosis
     Dosage: 75MG IVACAFTOR/ 50MG TEZACAFTOR/ 100MG ELEXACAFTOR, INITIAL INTRODUCTION AT HALF DOSE
     Route: 048
     Dates: start: 20240405, end: 202404
  2. ELEXACAFTOR\IVACAFTOR\TEZACAFTOR [Suspect]
     Active Substance: ELEXACAFTOR\IVACAFTOR\TEZACAFTOR
     Dosage: GRADUAL INCREASE IN DOSE UP TO FULL DOSE, 2 TAB EVERY DAY
     Route: 048
     Dates: start: 20240412, end: 20240510
  3. ELEXACAFTOR\IVACAFTOR\TEZACAFTOR [Suspect]
     Active Substance: ELEXACAFTOR\IVACAFTOR\TEZACAFTOR
     Route: 048
     Dates: start: 2024, end: 20240601
  4. ELEXACAFTOR\IVACAFTOR\TEZACAFTOR [Suspect]
     Active Substance: ELEXACAFTOR\IVACAFTOR\TEZACAFTOR
     Route: 048
     Dates: start: 20241002, end: 2024
  5. ELEXACAFTOR\IVACAFTOR\TEZACAFTOR [Suspect]
     Active Substance: ELEXACAFTOR\IVACAFTOR\TEZACAFTOR
     Route: 048
     Dates: start: 20241209, end: 202412
  6. ELEXACAFTOR\IVACAFTOR\TEZACAFTOR [Suspect]
     Active Substance: ELEXACAFTOR\IVACAFTOR\TEZACAFTOR
     Route: 048
     Dates: start: 20241216
  7. KALYDECO [Suspect]
     Active Substance: IVACAFTOR
     Indication: Cystic fibrosis
     Dosage: INITIAL INTRODUCTION OF HALF DOSE
     Route: 048
     Dates: start: 20240405, end: 202404
  8. KALYDECO [Suspect]
     Active Substance: IVACAFTOR
     Dosage: GRADUAL INCREASE IN DOSE UP TO FULL DOSE, 1 TAB EVERY DAY
     Route: 048
     Dates: start: 20240412, end: 20240510
  9. KALYDECO [Suspect]
     Active Substance: IVACAFTOR
     Route: 048
     Dates: start: 2024, end: 20240601
  10. KALYDECO [Suspect]
     Active Substance: IVACAFTOR
     Dosage: ONE TAB EVERYDAY
     Route: 048
     Dates: start: 20241002
  11. KALYDECO [Suspect]
     Active Substance: IVACAFTOR
     Route: 048
     Dates: start: 20241216, end: 2025
  12. ZITHROMAX [Concomitant]
     Active Substance: AZITHROMYCIN DIHYDRATE
     Dosage: ONE TABLET IN AM
  13. CHOLECALCIFEROL [Concomitant]
     Active Substance: CHOLECALCIFEROL
  14. NASACORT [Concomitant]
     Active Substance: TRIAMCINOLONE ACETONIDE
     Dosage: 1 SPRAY/NOSTRIL, BID
     Route: 045
  15. DOLIPRANE [Concomitant]
     Active Substance: ACETAMINOPHEN
     Indication: Pain
     Dosage: EVERY 6 HOURS IF PAIN OCCURS
  16. OZEMPIC [Concomitant]
     Active Substance: SEMAGLUTIDE
     Route: 058
  17. CYMBALTA [Concomitant]
     Active Substance: DULOXETINE HYDROCHLORIDE
  18. MIANSERIN [Concomitant]
     Active Substance: MIANSERIN
     Dosage: 1.5 TABS IN PM
  19. RISPERIDONE [Concomitant]
     Active Substance: RISPERIDONE
     Indication: Depression
     Dates: end: 20240902
  20. RISPERIDONE [Concomitant]
     Active Substance: RISPERIDONE
  21. Temesta [Concomitant]
  22. BROMAZEPAM [Concomitant]
     Active Substance: BROMAZEPAM
     Indication: Depression
  23. CYAMEMAZINE [Concomitant]
     Active Substance: CYAMEMAZINE
     Indication: Depression
  24. CYAMEMAZINE [Concomitant]
     Active Substance: CYAMEMAZINE
  25. FLUOXETINE [Concomitant]
     Active Substance: FLUOXETINE HYDROCHLORIDE
     Indication: Depression

REACTIONS (3)
  - Depression [Recovering/Resolving]
  - Anxiety [Recovered/Resolved]
  - Road traffic accident [Recovered/Resolved]

NARRATIVE: CASE EVENT DATE: 20240601
